FAERS Safety Report 20062212 (Version 2)
Quarter: 2021Q4

REPORT INFORMATION
  Report Type: Spontaneous
  Country: US (occurrence: US)
  Receive Date: 20211112
  Receipt Date: 20211218
  Transmission Date: 20220304
  Serious: No
  Sender: FDA-Public Use
  Company Number: US-MICRO LABS LIMITED-ML2021-02386

PATIENT
  Sex: Female

DRUGS (2)
  1. RASAGILINE [Suspect]
     Active Substance: RASAGILINE
     Indication: Parkinson^s disease
     Dosage: ONE TABLET
     Dates: end: 20210707
  2. CARBIDOPA AND LEVODOPA [Concomitant]
     Active Substance: CARBIDOPA\LEVODOPA

REACTIONS (6)
  - Oropharyngeal pain [Recovering/Resolving]
  - Throat irritation [Recovered/Resolved]
  - Product use complaint [Unknown]
  - Product physical issue [Unknown]
  - Dysgeusia [Unknown]
  - Product substitution issue [Unknown]
